FAERS Safety Report 24797944 (Version 2)
Quarter: 2025Q1

REPORT INFORMATION
  Report Type: Spontaneous
  Country: US (occurrence: US)
  Receive Date: 20250102
  Receipt Date: 20250116
  Transmission Date: 20250409
  Serious: No
  Sender: BRISTOL-MYERS SQUIBB COMPANY
  Company Number: US-BRISTOL-MYERS SQUIBB COMPANY-2024-201446

PATIENT
  Age: 85 Year
  Sex: Female
  Weight: 62.7 kg

DRUGS (8)
  1. ELIQUIS [Suspect]
     Active Substance: APIXABAN
     Indication: Atrial fibrillation
     Route: 048
     Dates: start: 20240909, end: 20241025
  2. TAFAMIDIS [Suspect]
     Active Substance: TAFAMIDIS
     Indication: Subclavian artery stenosis
     Dosage: QUANTITY #30 CAPSULES (30 DAYS)
     Route: 048
     Dates: start: 20230728
  3. TAFAMIDIS [Suspect]
     Active Substance: TAFAMIDIS
     Indication: Heart failure with preserved ejection fraction
  4. TAFAMIDIS [Suspect]
     Active Substance: TAFAMIDIS
     Indication: Cardiac failure chronic
  5. TAFAMIDIS [Suspect]
     Active Substance: TAFAMIDIS
     Indication: Chronic left ventricular failure
  6. TAFAMIDIS [Suspect]
     Active Substance: TAFAMIDIS
     Indication: Acquired ATTR amyloidosis
  7. CRESTOR [Suspect]
     Active Substance: ROSUVASTATIN CALCIUM
     Indication: Product used for unknown indication
     Route: 048
     Dates: start: 20240315
  8. AMIODARONE [Concomitant]
     Active Substance: AMIODARONE
     Indication: Atrial fibrillation

REACTIONS (5)
  - Urinary tract infection [Unknown]
  - Hypertension [Unknown]
  - Blood pressure fluctuation [Unknown]
  - Weight decreased [Unknown]
  - Fluid retention [Unknown]

NARRATIVE: CASE EVENT DATE: 20240901
